FAERS Safety Report 25509511 (Version 3)
Quarter: 2025Q4

REPORT INFORMATION
  Report Type: Spontaneous
  Country: EU (occurrence: EU)
  Receive Date: 20250703
  Receipt Date: 20251120
  Transmission Date: 20260117
  Serious: Yes (Other)
  Sender: AUROBINDO
  Company Number: EU-AUROBINDO-AUR-APL-2017-42226

PATIENT
  Age: 59 Year
  Sex: Male

DRUGS (24)
  1. LAMIVUDINE [Suspect]
     Active Substance: LAMIVUDINE
     Indication: Non-Hodgkin^s lymphoma stage IV
     Dosage: UNK
     Route: 065
     Dates: start: 20100101, end: 20150101
  2. LAMIVUDINE [Suspect]
     Active Substance: LAMIVUDINE
     Indication: Antiviral prophylaxis
  3. BENDAMUSTINE [Suspect]
     Active Substance: BENDAMUSTINE
     Indication: Non-Hodgkin^s lymphoma
     Dosage: UNK
     Route: 065
  4. BENDAMUSTINE [Suspect]
     Active Substance: BENDAMUSTINE
     Indication: Non-Hodgkin^s lymphoma stage IV
     Dosage: UNK
     Route: 065
  5. RITUXIMAB [Suspect]
     Active Substance: RITUXIMAB
     Indication: Non-Hodgkin^s lymphoma stage IV
     Dosage: UNK
     Route: 065
  6. CISPLATIN [Suspect]
     Active Substance: CISPLATIN
     Indication: Non-Hodgkin^s lymphoma stage IV
     Dosage: UNK
     Route: 065
  7. CISPLATIN [Suspect]
     Active Substance: CISPLATIN
     Indication: Prophylaxis against graft versus host disease
  8. DEXAMETHASONE [Suspect]
     Active Substance: DEXAMETHASONE
     Indication: Non-Hodgkin^s lymphoma stage IV
     Dosage: UNK
     Route: 065
  9. FLUDARABINE [Suspect]
     Active Substance: FLUDARABINE PHOSPHATE
     Indication: Non-Hodgkin^s lymphoma stage IV
     Dosage: UNK
     Route: 065
  10. FLUDARABINE [Suspect]
     Active Substance: FLUDARABINE PHOSPHATE
     Indication: Bone marrow conditioning regimen
  11. METHOTREXATE [Suspect]
     Active Substance: METHOTREXATE
     Indication: Graft versus host disease
     Dosage: UNK
     Route: 065
  12. METHOTREXATE [Suspect]
     Active Substance: METHOTREXATE
     Indication: Prophylaxis against graft versus host disease
  13. TENOFOVIR [Suspect]
     Active Substance: TENOFOVIR
     Indication: Hepatitis B reactivation
     Dosage: 245 MILLIGRAM, ONCE A DAY
     Route: 065
  14. CYTARABINE [Suspect]
     Active Substance: CYTARABINE
     Indication: Non-Hodgkin^s lymphoma
     Dosage: UNK
     Route: 065
  15. CYCLOSPORINE [Suspect]
     Active Substance: CYCLOSPORINE
     Indication: Graft versus host disease
     Dosage: UNK
     Route: 065
  16. CYCLOSPORINE [Suspect]
     Active Substance: CYCLOSPORINE
     Indication: Prophylaxis against graft versus host disease
  17. LAPINE T-LYMPHOCYTE IMMUNE GLOBULIN [Suspect]
     Active Substance: LAPINE T-LYMPHOCYTE IMMUNE GLOBULIN
     Indication: Bone marrow conditioning regimen
     Dosage: UNK
     Route: 065
  18. CYTARABINE [Concomitant]
     Active Substance: CYTARABINE
     Indication: Non-Hodgkin^s lymphoma stage IV
     Dosage: UNK
     Route: 065
  19. OFATUMUMAB [Concomitant]
     Active Substance: OFATUMUMAB
     Indication: Non-Hodgkin^s lymphoma stage IV
     Dosage: UNK
     Route: 065
  20. OFATUMUMAB [Concomitant]
     Active Substance: OFATUMUMAB
     Indication: Non-Hodgkin^s lymphoma
  21. THIOTEPA [Concomitant]
     Active Substance: THIOTEPA
     Indication: Non-Hodgkin^s lymphoma stage IV
     Dosage: UNK
     Route: 065
  22. BUSULFAN [Concomitant]
     Active Substance: BUSULFAN
     Indication: Non-Hodgkin^s lymphoma stage IV
     Dosage: UNK
     Route: 065
  23. ALEMTUZUMAB [Concomitant]
     Active Substance: ALEMTUZUMAB
     Indication: Non-Hodgkin^s lymphoma
     Dosage: UNK
     Route: 065
  24. RITUXIMAB [Suspect]
     Active Substance: RITUXIMAB

REACTIONS (7)
  - Pneumonia fungal [Unknown]
  - Lung adenocarcinoma [Unknown]
  - Osteopenia [Recovering/Resolving]
  - Nephropathy toxic [Recovering/Resolving]
  - Glomerular filtration rate decreased [Recovering/Resolving]
  - Hepatitis B reactivation [Recovered/Resolved]
  - Therapeutic response decreased [Recovering/Resolving]
